FAERS Safety Report 9563402 (Version 2)
Quarter: 2013Q4

REPORT INFORMATION
  Report Type: Spontaneous
  Country: US (occurrence: None)
  Receive Date: 20121218
  Receipt Date: 20131226
  Transmission Date: 20140711
  Serious: Yes (Other)
  Sender: FDA-Public Use
  Company Number: PHEH2012US009462

PATIENT
  Age: 55 Year
  Sex: Female

DRUGS (1)
  1. ZOMETA (ZOLEDRONATE) SOLUTION FOR INJECTION [Suspect]
     Indication: BREAST CANCER
     Route: 042
     Dates: start: 20120215

REACTIONS (12)
  - Pain [None]
  - Fatigue [None]
  - Bone pain [None]
  - Headache [None]
  - Vomiting [None]
  - Tremor [None]
  - Nasopharyngitis [None]
  - Chills [None]
  - Influenza like illness [None]
  - Mastication disorder [None]
  - Sluggishness [None]
  - Gingivitis [None]
